FAERS Safety Report 5648731-X (Version None)
Quarter: 2008Q1

REPORT INFORMATION
  Report Type: 
  Country: None (occurrence: None)
  Receive Date: 20080131
  Receipt Date: 20071217
  Transmission Date: 20080703
  Serious: No
  Sender: FDA-Public Use
  Company Number: US200712003601

PATIENT
  Age: 52 Year
  Sex: Female
  Weight: 127 kg

DRUGS (5)
  1. BYETTA [Suspect]
     Indication: OBESITY
     Dosage: SEE IMAGE
     Route: 058
     Dates: start: 20070601, end: 20070701
  2. BYETTA [Suspect]
     Indication: OBESITY
     Dosage: SEE IMAGE
     Route: 058
     Dates: start: 20070701, end: 20071101
  3. LISINOPRIL AND HYDROCHLOROTHIAZIDE [Concomitant]
  4. ... [Concomitant]
  5. .... [Concomitant]

REACTIONS (7)
  - AMENORRHOEA [None]
  - BLOOD URIC ACID INCREASED [None]
  - BURSITIS [None]
  - HYPERHIDROSIS [None]
  - NAUSEA [None]
  - NEURALGIA [None]
  - WEIGHT DECREASED [None]
